FAERS Safety Report 21232332 (Version 1)
Quarter: 2022Q3

REPORT INFORMATION
  Report Type: Spontaneous
  Country: US (occurrence: None)
  Receive Date: 20220818
  Receipt Date: 20220818
  Transmission Date: 20221027
  Serious: Yes (Other)
  Sender: FDA-Public Use
  Company Number: None

PATIENT
  Age: 91 Year
  Sex: Male
  Weight: 106.59 kg

DRUGS (1)
  1. BEBTELOVIMAB [Suspect]
     Active Substance: BEBTELOVIMAB
     Indication: COVID-19
     Route: 042
     Dates: start: 20220817, end: 20220817

REACTIONS (6)
  - Musculoskeletal chest pain [None]
  - Chest pain [None]
  - Pain [None]
  - Arthralgia [None]
  - Flank pain [None]
  - Abdominal pain [None]

NARRATIVE: CASE EVENT DATE: 20220817
